FAERS Safety Report 20694430 (Version 1)
Quarter: 2022Q2

REPORT INFORMATION
  Report Type: Spontaneous
  Country: US (occurrence: US)
  Receive Date: 20220411
  Receipt Date: 20220411
  Transmission Date: 20220721
  Serious: No
  Sender: FDA-Public Use
  Company Number: US-BRISTOL-MYERS SQUIBB COMPANY-2022-014684

PATIENT
  Age: 80 Year
  Sex: Female
  Weight: 103 kg

DRUGS (7)
  1. POMALYST [Suspect]
     Active Substance: POMALIDOMIDE
     Indication: Plasma cell myeloma
     Dosage: DOSE : 2MG;     FREQ : 21 DAYS ON 7 DAYS OFF
     Route: 048
     Dates: start: 20220126
  2. POMALYST [Suspect]
     Active Substance: POMALIDOMIDE
  3. AMLODIPINE BESYLATE [Concomitant]
     Active Substance: AMLODIPINE BESYLATE
     Indication: Product used for unknown indication
  4. aspirin 81mg tablet [Concomitant]
     Indication: Product used for unknown indication
  5. ferrous gluconate 324mg tablet [Concomitant]
     Indication: Product used for unknown indication
  6. Toprol XL 50mg tablet [Concomitant]
     Indication: Product used for unknown indication
  7. vitamin D 1000u capsule, [Concomitant]
     Indication: Product used for unknown indication
     Dosage: STRENGTH:1000U

REACTIONS (1)
  - Neutrophil count [Unknown]

NARRATIVE: CASE EVENT DATE: 20220325
